FAERS Safety Report 6848807-5 (Version None)
Quarter: 2010Q3

REPORT INFORMATION
  Report Type: 
  Country: None (occurrence: None)
  Receive Date: 20100716
  Receipt Date: 20070910
  Transmission Date: 20110219
  Serious: No
  Sender: FDA-Public Use
  Company Number: US-PFIZER INC-2007075580

PATIENT
  Sex: Female
  Weight: 58.2 kg

DRUGS (4)
  1. CHANTIX [Suspect]
     Indication: SMOKING CESSATION THERAPY
     Route: 048
     Dates: start: 20070825
  2. SPIRIVA [Suspect]
  3. ANTIHYPERTENSIVES [Concomitant]
  4. LAMISIL [Concomitant]

REACTIONS (2)
  - DRY MOUTH [None]
  - NASAL DRYNESS [None]
